FAERS Safety Report 19259048 (Version 1)
Quarter: 2021Q2

REPORT INFORMATION
  Report Type: Spontaneous
  Country: US (occurrence: US)
  Receive Date: 20210514
  Receipt Date: 20210514
  Transmission Date: 20210717
  Serious: No
  Sender: FDA-Public Use
  Company Number: US-TAKEDA-2021TUS028468

PATIENT
  Sex: Male

DRUGS (4)
  1. GAMMAGARD LIQUID [Suspect]
     Active Substance: HUMAN IMMUNOGLOBULIN G
     Indication: HAEMOPHAGOCYTIC LYMPHOHISTIOCYTOSIS
     Dosage: 200 CC OF 10% GGL
     Route: 042
     Dates: start: 20210415
  2. GAMMAGARD LIQUID [Suspect]
     Active Substance: HUMAN IMMUNOGLOBULIN G
     Dosage: 300 CC OF 10% GGL
     Route: 042
     Dates: start: 20210424
  3. GAMMAGARD LIQUID [Suspect]
     Active Substance: HUMAN IMMUNOGLOBULIN G
     Dosage: 200 CC OF 10% GGL
     Route: 042
     Dates: start: 20210415
  4. ANAKINRA [Concomitant]
     Active Substance: ANAKINRA
     Indication: HAEMOPHAGOCYTIC LYMPHOHISTIOCYTOSIS
     Route: 065

REACTIONS (1)
  - SARS-CoV-2 test positive [Unknown]
